FAERS Safety Report 19068030 (Version 2)
Quarter: 2021Q2

REPORT INFORMATION
  Report Type: Spontaneous
  Country: FR (occurrence: FR)
  Receive Date: 20210329
  Receipt Date: 20210413
  Transmission Date: 20210717
  Serious: Yes (Hospitalization)
  Sender: FDA-Public Use
  Company Number: NVSC2021FR063900

PATIENT
  Age: 37 Year
  Sex: Female
  Weight: 61 kg

DRUGS (7)
  1. FULVESTRANT. [Concomitant]
     Active Substance: FULVESTRANT
     Indication: HORMONE THERAPY
     Dosage: 250 X 2, QOD
     Route: 030
  2. CACIT D3 [Concomitant]
     Active Substance: CALCIUM\CHOLECALCIFEROL
     Indication: PRODUCT USED FOR UNKNOWN INDICATION
     Dosage: 1 DF, QD
     Route: 065
  3. COUMADIN [Concomitant]
     Active Substance: WARFARIN SODIUM
     Indication: ANTICOAGULANT THERAPY
     Dosage: UNK
     Route: 065
  4. PIQRAY [Suspect]
     Active Substance: ALPELISIB
     Indication: HORMONE RECEPTOR POSITIVE BREAST CANCER
     Dosage: 300 MG, QD
     Route: 048
     Dates: start: 20210101, end: 20210314
  5. HEPARIN [Concomitant]
     Active Substance: HEPARIN SODIUM
     Indication: ANTICOAGULANT THERAPY
     Dosage: UNK
     Route: 065
  6. INNOHEP [Concomitant]
     Active Substance: TINZAPARIN SODIUM
     Indication: PHLEBITIS
     Dosage: 0.55 UNK
     Route: 058
  7. GOSERELINE [Concomitant]
     Active Substance: GOSERELIN
     Indication: PRODUCT USED FOR UNKNOWN INDICATION
     Dosage: 10.8 MG, Q3MO (LP)
     Route: 065

REACTIONS (8)
  - Vomiting [Unknown]
  - Vasculitis [Unknown]
  - Nausea [Unknown]
  - Headache [Unknown]
  - Migraine [Unknown]
  - Dizziness [Unknown]
  - Subarachnoid haemorrhage [Unknown]
  - General physical health deterioration [Unknown]

NARRATIVE: CASE EVENT DATE: 20210312
